FAERS Safety Report 8172600-7 (Version None)
Quarter: 2012Q1

REPORT INFORMATION
  Report Type: 
  Country: None (occurrence: None)
  Receive Date: 20120229
  Receipt Date: 20120223
  Transmission Date: 20120608
  Serious: No
  Sender: FDA-Public Use
  Company Number: US-PFIZER INC-2012048754

PATIENT
  Age: 78 Year
  Sex: Female
  Weight: 58.9 kg

DRUGS (1)
  1. FLECTOR [Suspect]
     Indication: MYALGIA
     Dosage: UNK, 2X/DAY
     Route: 062
     Dates: start: 20120218, end: 20120201

REACTIONS (2)
  - PRURITUS [None]
  - RASH [None]
